FAERS Safety Report 21191533 (Version 1)
Quarter: 2022Q3

REPORT INFORMATION
  Report Type: Spontaneous
  Country: US (occurrence: None)
  Receive Date: 20220809
  Receipt Date: 20220809
  Transmission Date: 20221026
  Serious: No
  Sender: FDA-Public Use
  Company Number: None

PATIENT
  Sex: Female

DRUGS (1)
  1. COSENTYX [Suspect]
     Active Substance: SECUKINUMAB
     Indication: Psoriatic arthropathy
     Dosage: ?150MG WEEKY SUBCUTANEOUS
     Route: 058
     Dates: start: 20220714

REACTIONS (4)
  - Skin burning sensation [None]
  - Pruritus [None]
  - Contusion [None]
  - Drug ineffective [None]
